FAERS Safety Report 8313447-8 (Version None)
Quarter: 2012Q2

REPORT INFORMATION
  Report Type: 
  Country: None (occurrence: None)
  Receive Date: 20120426
  Receipt Date: 20120423
  Transmission Date: 20120825
  Serious: Yes (Death)
  Sender: FDA-Public Use
  Company Number: PHEH2012US008590

PATIENT
  Sex: Female

DRUGS (2)
  1. RECLAST [Suspect]
     Dosage: 5 MG,/YEAR
     Route: 042
     Dates: start: 20100301
  2. RECLAST [Suspect]
     Dosage: 5 MG,/YEAR
     Route: 042
     Dates: start: 20110401

REACTIONS (1)
  - DEATH [None]
